FAERS Safety Report 7719106-4 (Version None)
Quarter: 2011Q3

REPORT INFORMATION
  Report Type: 
  Country: None (occurrence: None)
  Receive Date: 20110830
  Receipt Date: 20110825
  Transmission Date: 20111222
  Serious: Yes (Death, Hospitalization, Other)
  Sender: FDA-Public Use
  Company Number: US-JNJFOC-20110706676

PATIENT
  Sex: Male
  Weight: 65.77 kg

DRUGS (11)
  1. WARFARIN SODIUM [Interacting]
     Indication: DEEP VEIN THROMBOSIS
     Route: 048
     Dates: start: 20080901
  2. WARFARIN SODIUM [Interacting]
     Route: 048
  3. LEVAQUIN [Suspect]
     Route: 048
     Dates: start: 20081001, end: 20081001
  4. WARFARIN SODIUM [Interacting]
     Indication: ANTICOAGULANT THERAPY
     Route: 048
     Dates: start: 20080901
  5. ARICEPT [Concomitant]
     Indication: DEMENTIA
     Route: 048
     Dates: start: 20080901, end: 20081101
  6. LOPRESSOR [Concomitant]
     Indication: BLOOD PRESSURE
     Route: 048
     Dates: start: 20080901, end: 20090106
  7. LEVAQUIN [Suspect]
     Indication: LUNG INFILTRATION
     Route: 048
     Dates: start: 20081106, end: 20081109
  8. WARFARIN SODIUM [Interacting]
     Route: 048
  9. AMBIEN [Concomitant]
     Indication: INSOMNIA
     Dosage: AS NEEDED
     Route: 065
     Dates: start: 20080901, end: 20090106
  10. DEPAKOTE [Concomitant]
     Route: 065
     Dates: start: 20080901, end: 20081001
  11. ZYPREXA ZYDIS [Concomitant]
     Route: 065
     Dates: start: 20080901, end: 20090106

REACTIONS (6)
  - RECTAL HAEMORRHAGE [None]
  - HAEMOPTYSIS [None]
  - ANAPHYLACTIC SHOCK [None]
  - DRUG INTERACTION [None]
  - GASTROINTESTINAL HAEMORRHAGE [None]
  - ATRIAL FIBRILLATION [None]
